FAERS Safety Report 20531836 (Version 1)
Quarter: 2022Q1

REPORT INFORMATION
  Report Type: Spontaneous
  Country: US (occurrence: None)
  Receive Date: 20220228
  Receipt Date: 20220228
  Transmission Date: 20220423
  Serious: Yes (Other)
  Sender: FDA-Public Use
  Company Number: None

PATIENT
  Age: 63 Year
  Sex: Male
  Weight: 76.5 kg

DRUGS (2)
  1. RECLAST [Suspect]
     Active Substance: ZOLEDRONIC ACID
     Indication: Osteoporosis
     Dosage: FREQUENCY : AS NEEDED;?
     Route: 041
     Dates: start: 20220124, end: 20220124
  2. RECLAST [Concomitant]
     Active Substance: ZOLEDRONIC ACID
     Dates: start: 20220124, end: 20220124

REACTIONS (2)
  - Pyrexia [None]
  - Chills [None]

NARRATIVE: CASE EVENT DATE: 20220124
